FAERS Safety Report 22661828 (Version 1)
Quarter: 2023Q2

REPORT INFORMATION
  Report Type: Spontaneous
  Country: CN (occurrence: None)
  Receive Date: 20230630
  Receipt Date: 20230630
  Transmission Date: 20230721
  Serious: Yes (Death, Other)
  Sender: FDA-Public Use
  Company Number: CN-ROCHE-3378435

PATIENT

DRUGS (5)
  1. AVASTIN [Suspect]
     Active Substance: BEVACIZUMAB
     Indication: Colorectal cancer metastatic
     Route: 065
  2. FLUOROURACIL [Concomitant]
     Active Substance: FLUOROURACIL
     Indication: Colorectal cancer metastatic
     Route: 065
  3. LEUCOVORIN CALCIUM [Concomitant]
     Active Substance: LEUCOVORIN CALCIUM
     Indication: Colorectal cancer metastatic
     Route: 065
  4. OXALIPLATIN [Concomitant]
     Active Substance: OXALIPLATIN
     Indication: Colorectal cancer metastatic
     Route: 065
  5. IRINOTECAN [Concomitant]
     Active Substance: IRINOTECAN
     Indication: Colorectal cancer metastatic
     Route: 065

REACTIONS (9)
  - Neutropenia [Unknown]
  - Hypertension [Unknown]
  - Diarrhoea [Unknown]
  - Skin toxicity [Unknown]
  - Sepsis [Fatal]
  - Multiple organ dysfunction syndrome [Fatal]
  - Portal vein thrombosis [Fatal]
  - Septic shock [Fatal]
  - Hepatic failure [Fatal]
